APPROVED DRUG PRODUCT: TICAGRELOR
Active Ingredient: TICAGRELOR
Strength: 90MG
Dosage Form/Route: TABLET;ORAL
Application: A208567 | Product #001 | TE Code: AB
Applicant: ALKEM LABORATORIES LTD
Approved: Apr 21, 2023 | RLD: No | RS: No | Type: RX